FAERS Safety Report 11545538 (Version 1)
Quarter: 2015Q3

REPORT INFORMATION
  Report Type: Spontaneous
  Country: US (occurrence: US)
  Receive Date: 20150924
  Receipt Date: 20150924
  Transmission Date: 20151125
  Serious: No
  Sender: FDA-Public Use
  Company Number: US-ABBVIE-14P-163-1310968-00

PATIENT
  Age: 43 Year
  Sex: Female

DRUGS (1)
  1. VICOPROFEN [Suspect]
     Active Substance: HYDROCODONE BITARTRATE\IBUPROFEN
     Indication: FIBROMYALGIA
     Dosage: FIVE OR SIX 7.5/200 MILLIGRAM TABLETS PER DAY
     Route: 065

REACTIONS (5)
  - Depression [Not Recovered/Not Resolved]
  - Withdrawal syndrome [Unknown]
  - Pyrexia [Not Recovered/Not Resolved]
  - Drug dependence [Not Recovered/Not Resolved]
  - Myalgia [Not Recovered/Not Resolved]

NARRATIVE: CASE EVENT DATE: 201411
